FAERS Safety Report 24638808 (Version 1)
Quarter: 2024Q4

REPORT INFORMATION
  Report Type: Other
  Country: CN (occurrence: CN)
  Receive Date: 20241119
  Receipt Date: 20241119
  Transmission Date: 20250114
  Serious: Yes (Hospitalization)
  Sender: B BRAUN
  Company Number: CN-B.Braun Medical Inc.-2165380

PATIENT
  Age: 64 Year
  Sex: Female

DRUGS (4)
  1. MEROPENEM [Suspect]
     Active Substance: MEROPENEM
     Indication: Bronchitis
  2. MEROPENEM [Suspect]
     Active Substance: MEROPENEM
     Indication: Pneumonitis
  3. TACROLIMUS [Concomitant]
     Active Substance: TACROLIMUS
  4. Enteric-coated mycophenolate sodium [Concomitant]

REACTIONS (1)
  - Drug ineffective [Unknown]
